FAERS Safety Report 16145012 (Version 1)
Quarter: 2019Q2

REPORT INFORMATION
  Report Type: Spontaneous
  Country: US (occurrence: US)
  Receive Date: 20190227
  Receipt Date: 20190227
  Transmission Date: 20190711
  Serious: No
  Sender: FDA-Public Use
  Company Number: None

PATIENT
  Age: 53 Year
  Sex: Female

DRUGS (2)
  1. RASUVO [Suspect]
     Active Substance: METHOTREXATE SODIUM
     Indication: TORTICOLLIS
     Dosage: ?          OTHER DOSE:12.5MG (0.25ML) THE SAME DAY EACH WEEK AS DIRECTED?
     Route: 058
  2. RASUVO [Suspect]
     Active Substance: METHOTREXATE SODIUM
     Indication: SYSTEMIC SCLERODERMA
     Dosage: ?          OTHER DOSE:12.5MG (0.25ML) THE SAME DAY EACH WEEK AS DIRECTED?
     Route: 058

REACTIONS (1)
  - Off label use [None]
